FAERS Safety Report 11558533 (Version 3)
Quarter: 2016Q4

REPORT INFORMATION
  Report Type: Spontaneous
  Country: US (occurrence: US)
  Receive Date: 20150928
  Receipt Date: 20161202
  Transmission Date: 20170206
  Serious: Yes (Other)
  Sender: FDA-Public Use
  Company Number: US-ELI_LILLY_AND_COMPANY-US201509004852

PATIENT
  Age: 64 Year
  Sex: Female
  Weight: 80.73 kg

DRUGS (4)
  1. CYMBALTA [Suspect]
     Active Substance: DULOXETINE HYDROCHLORIDE
     Dosage: 20 MG, QD
     Route: 048
     Dates: end: 20131208
  2. CYMBALTA [Suspect]
     Active Substance: DULOXETINE HYDROCHLORIDE
     Dosage: 60 MG, BID
     Route: 048
     Dates: start: 20120807
  3. CYMBALTA [Suspect]
     Active Substance: DULOXETINE HYDROCHLORIDE
     Indication: PRODUCT USED FOR UNKNOWN INDICATION
     Dosage: 60 MG, EACH MORNING
     Route: 048
     Dates: start: 20061031
  4. CYMBALTA [Suspect]
     Active Substance: DULOXETINE HYDROCHLORIDE
     Dosage: UNK, UNKNOWN
     Route: 048

REACTIONS (25)
  - Insomnia [Unknown]
  - Dizziness [Unknown]
  - Withdrawal syndrome [Unknown]
  - Wrong technique in product usage process [Unknown]
  - Hyperhidrosis [Unknown]
  - Affect lability [Unknown]
  - Tremor [Unknown]
  - Agitation [Unknown]
  - Paraesthesia [Unknown]
  - Poor quality sleep [Unknown]
  - Crying [Unknown]
  - Nausea [Unknown]
  - Irritability [Unknown]
  - Feeling abnormal [Unknown]
  - Lethargy [Unknown]
  - Fatigue [Unknown]
  - Gait disturbance [Unknown]
  - Sluggishness [Unknown]
  - Vomiting [Unknown]
  - Dysphoria [Unknown]
  - Confusional state [Unknown]
  - Suicidal ideation [Unknown]
  - Mood swings [Unknown]
  - Vertigo [Unknown]
  - Anxiety [Unknown]

NARRATIVE: CASE EVENT DATE: 20131216
